FAERS Safety Report 15782285 (Version 15)
Quarter: 2025Q2

REPORT INFORMATION
  Report Type: Report from Study
  Country: JP (occurrence: JP)
  Receive Date: 20190102
  Receipt Date: 20250404
  Transmission Date: 20250716
  Serious: Yes (Hospitalization)
  Sender: ABBVIE
  Company Number: JP-ABBVIE-17K-087-2100393-00

PATIENT
  Age: 79 Year
  Sex: Female

DRUGS (39)
  1. CARBIDOPA\LEVODOPA [Suspect]
     Active Substance: CARBIDOPA\LEVODOPA
     Indication: Parkinson^s disease
     Route: 050
     Dates: start: 20170823, end: 20170823
  2. CARBIDOPA\LEVODOPA [Suspect]
     Active Substance: CARBIDOPA\LEVODOPA
     Route: 050
     Dates: start: 20170823, end: 20170824
  3. CARBIDOPA\LEVODOPA [Suspect]
     Active Substance: CARBIDOPA\LEVODOPA
     Route: 050
     Dates: start: 20170825, end: 20170825
  4. CARBIDOPA\LEVODOPA [Suspect]
     Active Substance: CARBIDOPA\LEVODOPA
     Route: 050
     Dates: start: 20170826, end: 20170826
  5. CARBIDOPA\LEVODOPA [Suspect]
     Active Substance: CARBIDOPA\LEVODOPA
     Route: 050
     Dates: start: 20170827, end: 20170828
  6. CARBIDOPA\LEVODOPA [Suspect]
     Active Substance: CARBIDOPA\LEVODOPA
     Route: 050
     Dates: start: 20170829, end: 20170829
  7. CARBIDOPA\LEVODOPA [Suspect]
     Active Substance: CARBIDOPA\LEVODOPA
     Route: 050
     Dates: start: 20170830, end: 20170830
  8. CARBIDOPA\LEVODOPA [Suspect]
     Active Substance: CARBIDOPA\LEVODOPA
     Route: 050
     Dates: start: 20170831, end: 20170831
  9. CARBIDOPA\LEVODOPA [Suspect]
     Active Substance: CARBIDOPA\LEVODOPA
     Route: 050
     Dates: start: 20170901, end: 20170901
  10. CARBIDOPA\LEVODOPA [Suspect]
     Active Substance: CARBIDOPA\LEVODOPA
     Route: 050
     Dates: start: 20170902, end: 20170902
  11. CARBIDOPA\LEVODOPA [Suspect]
     Active Substance: CARBIDOPA\LEVODOPA
     Route: 050
     Dates: start: 20170903, end: 20170903
  12. CARBIDOPA\LEVODOPA [Suspect]
     Active Substance: CARBIDOPA\LEVODOPA
     Route: 050
     Dates: start: 20170904, end: 20170904
  13. CARBIDOPA\LEVODOPA [Suspect]
     Active Substance: CARBIDOPA\LEVODOPA
     Route: 050
     Dates: start: 20170905, end: 20170905
  14. CARBIDOPA\LEVODOPA [Suspect]
     Active Substance: CARBIDOPA\LEVODOPA
     Route: 050
     Dates: start: 20170906, end: 20170906
  15. CARBIDOPA\LEVODOPA [Suspect]
     Active Substance: CARBIDOPA\LEVODOPA
     Route: 050
     Dates: start: 20170907, end: 20170912
  16. CARBIDOPA\LEVODOPA [Suspect]
     Active Substance: CARBIDOPA\LEVODOPA
     Route: 050
     Dates: start: 20170913, end: 20170919
  17. CARBIDOPA\LEVODOPA [Suspect]
     Active Substance: CARBIDOPA\LEVODOPA
     Route: 050
     Dates: start: 20170920, end: 20170930
  18. CARBIDOPA\LEVODOPA [Suspect]
     Active Substance: CARBIDOPA\LEVODOPA
     Route: 050
     Dates: start: 20171001, end: 20171006
  19. CARBIDOPA\LEVODOPA [Suspect]
     Active Substance: CARBIDOPA\LEVODOPA
     Route: 050
     Dates: start: 20171007, end: 20171010
  20. CARBIDOPA\LEVODOPA [Suspect]
     Active Substance: CARBIDOPA\LEVODOPA
     Route: 050
     Dates: start: 20171011, end: 20171128
  21. CARBIDOPA\LEVODOPA [Suspect]
     Active Substance: CARBIDOPA\LEVODOPA
     Route: 050
     Dates: start: 20171128
  22. RINDERON VG [Suspect]
     Active Substance: BETAMETHASONE VALERATE\GENTAMICIN SULFATE
     Indication: Product used for unknown indication
     Route: 061
     Dates: start: 20171017, end: 20171106
  23. AMANTADINE HYDROCHLORIDE [Concomitant]
     Active Substance: AMANTADINE HYDROCHLORIDE
     Indication: On and off phenomenon
     Route: 048
     Dates: end: 20170823
  24. ZONISAMIDE [Concomitant]
     Active Substance: ZONISAMIDE
     Indication: Tremor
     Route: 048
     Dates: end: 20170827
  25. QUETIAPINE FUMARATE [Concomitant]
     Active Substance: QUETIAPINE FUMARATE
     Indication: Hallucination
     Route: 048
     Dates: end: 20170829
  26. QUETIAPINE FUMARATE [Concomitant]
     Active Substance: QUETIAPINE FUMARATE
     Indication: Hallucination
     Route: 048
     Dates: start: 20170830, end: 20170903
  27. HERBALS [Concomitant]
     Active Substance: HERBALS
     Indication: Hallucination
     Route: 048
     Dates: end: 20170906
  28. HERBALS [Concomitant]
     Active Substance: HERBALS
     Indication: Hallucination
     Route: 048
     Dates: start: 20170907, end: 20170911
  29. HERBALS [Concomitant]
     Active Substance: HERBALS
     Indication: Hallucination
     Route: 048
     Dates: start: 20170912, end: 20170914
  30. LORAZEPAM [Concomitant]
     Active Substance: LORAZEPAM
     Indication: Hallucination
     Route: 048
  31. TIZANIDINE HYDROCHLORIDE [Concomitant]
     Active Substance: TIZANIDINE HYDROCHLORIDE
     Indication: Muscle tightness
     Route: 048
  32. MAGNESIUM OXIDE [Concomitant]
     Active Substance: MAGNESIUM OXIDE
     Indication: Constipation
     Route: 048
  33. LOXOPROFEN SODIUM DIHYDRATE [Concomitant]
     Active Substance: LOXOPROFEN SODIUM DIHYDRATE
     Indication: Headache
     Route: 048
  34. BROTIZOLAM [Concomitant]
     Active Substance: BROTIZOLAM
     Indication: Insomnia
     Route: 048
  35. SUMATRIPTAN [Concomitant]
     Active Substance: SUMATRIPTAN
     Indication: Migraine
     Route: 048
     Dates: start: 20170906
  36. DOMPERIDONE [Concomitant]
     Active Substance: DOMPERIDONE
     Indication: Nausea
     Route: 048
     Dates: start: 20171013
  37. CARBIDOPA\LEVODOPA [Concomitant]
     Active Substance: CARBIDOPA\LEVODOPA
     Indication: Parkinson^s disease
     Route: 065
  38. CARBIDOPA\LEVODOPA [Concomitant]
     Active Substance: CARBIDOPA\LEVODOPA
     Indication: Parkinson^s disease
     Route: 048
     Dates: start: 20180807
  39. ROTIGOTINE [Concomitant]
     Active Substance: ROTIGOTINE
     Indication: Parkinson^s disease
     Route: 061

REACTIONS (22)
  - Medical device removal [Recovered/Resolved]
  - Therapy cessation [Unknown]
  - Medical device removal [Recovered/Resolved]
  - Therapeutic response shortened [Recovered/Resolved]
  - Fatigue [Unknown]
  - Therapeutic response shortened [Recovered/Resolved]
  - Tremor [Unknown]
  - Therapeutic response shortened [Recovered/Resolved]
  - Therapeutic response shortened [Recovered/Resolved]
  - Dyskinesia [Recovered/Resolved]
  - Visual impairment [Unknown]
  - Posture abnormal [Unknown]
  - Medical device removal [Recovered/Resolved]
  - Device kink [Recovered/Resolved]
  - Device occlusion [Recovered/Resolved]
  - Stoma site hypergranulation [Recovering/Resolving]
  - Skin candida [Recovering/Resolving]
  - Dyskinesia [Recovered/Resolved]
  - Device occlusion [Recovered/Resolved]
  - Dyskinesia [Unknown]
  - Therapeutic response shortened [Recovered/Resolved]
  - Therapeutic response shortened [Recovered/Resolved]

NARRATIVE: CASE EVENT DATE: 20170825
